FAERS Safety Report 23371771 (Version 1)
Quarter: 2024Q1

REPORT INFORMATION
  Report Type: Spontaneous
  Country: CN (occurrence: CN)
  Receive Date: 20240105
  Receipt Date: 20240105
  Transmission Date: 20240410
  Serious: Yes (Other)
  Sender: FDA-Public Use
  Company Number: CN-NAPPMUNDI-GBR-2023-0113326

PATIENT
  Age: 74 Year
  Sex: Male
  Weight: 44 kg

DRUGS (3)
  1. OXYCODONE HYDROCHLORIDE [Suspect]
     Active Substance: OXYCODONE HYDROCHLORIDE
     Indication: Tumour pain
     Dosage: 10 MILLIGRAM, DAILY
     Route: 048
     Dates: start: 20231210, end: 20231210
  2. TRAMADOL HYDROCHLORIDE [Suspect]
     Active Substance: TRAMADOL HYDROCHLORIDE
     Indication: Tumour pain
     Dosage: 100 MILLIGRAM, DAILY
     Route: 048
     Dates: start: 20231212, end: 20231212
  3. MORPHINE HYDROCHLORIDE [Suspect]
     Active Substance: MORPHINE HYDROCHLORIDE
     Indication: Tumour pain
     Dosage: 5 MILLIGRAM, DAILY
     Route: 048
     Dates: start: 20231211, end: 20231211

REACTIONS (2)
  - Dermatitis [Recovering/Resolving]
  - Drug ineffective [Unknown]

NARRATIVE: CASE EVENT DATE: 20231210
